FAERS Safety Report 8542558-7 (Version None)
Quarter: 2012Q3

REPORT INFORMATION
  Report Type: 
  Country: None (occurrence: None)
  Receive Date: 20120726
  Receipt Date: 20120719
  Transmission Date: 20120928
  Serious: Yes (Other)
  Sender: FDA-Public Use
  Company Number: FR-ABBOTT-12P-056-0952457-00

PATIENT
  Sex: Male
  Weight: 80 kg

DRUGS (3)
  1. HUMIRA [Suspect]
     Indication: CROHN'S DISEASE
  2. HUMIRA [Suspect]
     Indication: ANKYLOSING SPONDYLITIS
     Dosage: PATIENT RECEIVED ONLY 1 INJECTION
     Route: 058
     Dates: start: 20120616
  3. HUMIRA [Suspect]
     Indication: PSORIATIC ARTHROPATHY

REACTIONS (9)
  - VERTIGO [None]
  - PARAESTHESIA ORAL [None]
  - PSORIASIS [None]
  - DYSPNOEA [None]
  - PRURITUS [None]
  - MALAISE [None]
  - COUGH [None]
  - SENSE OF OPPRESSION [None]
  - BURNING SENSATION [None]
